FAERS Safety Report 15880214 (Version 1)
Quarter: 2019Q1

REPORT INFORMATION
  Report Type: Spontaneous
  Country: IL (occurrence: IL)
  Receive Date: 20190128
  Receipt Date: 20190128
  Transmission Date: 20190417
  Serious: Yes (Other)
  Sender: FDA-Public Use
  Company Number: IL-ALLERGAN-1903669US

PATIENT
  Age: 30 Year
  Sex: Male

DRUGS (1)
  1. RESTASIS [Suspect]
     Active Substance: CYCLOSPORINE
     Indication: CORNEAL INFILTRATES
     Dosage: UNK
     Route: 047

REACTIONS (2)
  - Corneal oedema [Recovered/Resolved]
  - Off label use [Unknown]
